FAERS Safety Report 5215516-8 (Version None)
Quarter: 2007Q1

REPORT INFORMATION
  Report Type: 
  Country: None (occurrence: None)
  Receive Date: 20070123
  Receipt Date: 20070109
  Transmission Date: 20070707
  Serious: Yes (Hospitalization)
  Sender: FDA-Public Use
  Company Number: PHBS2007AU01214

PATIENT
  Age: 29 Year
  Sex: Female

DRUGS (1)
  1. CARBAMAZEPINE [Suspect]
     Dosage: 20 G OR 400 MG/KG
     Route: 048

REACTIONS (14)
  - ABDOMINAL DISTENSION [None]
  - BLOOD PRESSURE DECREASED [None]
  - BOWEL SOUNDS ABNORMAL [None]
  - COMA [None]
  - DELIRIUM [None]
  - DRUG LEVEL INCREASED [None]
  - GLASGOW COMA SCALE ABNORMAL [None]
  - ILEOSTOMY [None]
  - INTESTINAL OBSTRUCTION [None]
  - INTUBATION [None]
  - LAPAROTOMY [None]
  - OVERDOSE [None]
  - RESPIRATORY RATE DECREASED [None]
  - SOMNOLENCE [None]
